FAERS Safety Report 17374767 (Version 4)
Quarter: 2021Q1

REPORT INFORMATION
  Report Type: Spontaneous
  Country: US (occurrence: US)
  Receive Date: 20200205
  Receipt Date: 20210128
  Transmission Date: 20210419
  Serious: Yes (Death)
  Sender: FDA-Public Use
  Company Number: US-PFIZER INC-2020047952

PATIENT
  Age: 90 Year
  Sex: Female
  Weight: 67.13 kg

DRUGS (13)
  1. VYNDAQEL [Suspect]
     Active Substance: TAFAMIDIS MEGLUMINE
     Indication: CARDIAC FAILURE CONGESTIVE
     Dosage: 80 MG, 1X/DAY
     Route: 048
     Dates: start: 20200130
  2. NAMENDA [Concomitant]
     Active Substance: MEMANTINE HYDROCHLORIDE
     Indication: DEMENTIA
     Dosage: 32 MG, 1X/DAY (32 MG CAPSULE, ONCE DAILY, AT DINNERTIME)
     Route: 048
     Dates: start: 2012
  3. METOPROLOL. [Concomitant]
     Active Substance: METOPROLOL
     Indication: SYNCOPE
     Dosage: 20 MG, 1X/DAY [20MG TABLET, ONCE DAILY]
     Route: 048
     Dates: start: 1990
  4. TIZANIDINE. [Concomitant]
     Active Substance: TIZANIDINE
     Indication: NERVE INJURY
  5. ARICEPT [Concomitant]
     Active Substance: DONEPEZIL HYDROCHLORIDE
     Indication: DEMENTIA
     Dosage: 10 MG, 1X/DAY [10 MG TABLET, ONCE DAILY]
     Route: 048
     Dates: start: 2012
  6. LOVASTATIN. [Concomitant]
     Active Substance: LOVASTATIN
     Indication: SYNCOPE
     Dosage: 25 MG, 1X/DAY
     Route: 048
     Dates: start: 1980
  7. GABAPENTIN. [Concomitant]
     Active Substance: GABAPENTIN
     Indication: NEURALGIA
     Dosage: 300 MG, 3X/DAY [300 MG CAPSULE, THREE TIMES DAILY]
     Route: 048
     Dates: start: 2015
  8. METOPROLOL. [Concomitant]
     Active Substance: METOPROLOL
     Indication: BLOOD PRESSURE ABNORMAL
  9. GABAPENTIN. [Concomitant]
     Active Substance: GABAPENTIN
     Indication: NERVE INJURY
  10. TIZANIDINE. [Concomitant]
     Active Substance: TIZANIDINE
     Indication: NEURALGIA
     Dosage: 2 MG, 3X/DAY
     Route: 048
     Dates: start: 2015
  11. WARFARIN [Concomitant]
     Active Substance: WARFARIN
     Indication: THROMBOSIS
     Dosage: 2 MG, ONCE DAILY FOR 5 DAYS A WEEK; 1 MG, ONCE DAILY FOR 2 DAYS A WEEK
     Route: 048
     Dates: start: 1980
  12. BUMETANIDE. [Concomitant]
     Active Substance: BUMETANIDE
     Indication: CARDIAC FAILURE CONGESTIVE
     Dosage: 0.5 MG, 1X/DAY (IN THE MORNING)
     Route: 048
     Dates: start: 20190617
  13. POTASSIUM CHLORIDE. [Concomitant]
     Active Substance: POTASSIUM CHLORIDE
     Indication: ELECTROLYTE SUBSTITUTION THERAPY
     Dosage: 10 MG, 1X/DAY [10 MG TABLET, ONCE DAILY]
     Route: 048
     Dates: start: 20190617

REACTIONS (4)
  - Death [Fatal]
  - Off label use [Unknown]
  - Diarrhoea [Unknown]
  - Nightmare [Recovered/Resolved]

NARRATIVE: CASE EVENT DATE: 20200130
